FAERS Safety Report 25063940 (Version 1)
Quarter: 2025Q1

REPORT INFORMATION
  Report Type: Spontaneous
  Country: US (occurrence: US)
  Receive Date: 20250311
  Receipt Date: 20250311
  Transmission Date: 20250409
  Serious: Yes (Other)
  Sender: BAYER HEALTHCARE LLC
  Company Number: US-BAYER-2025A029419

PATIENT

DRUGS (2)
  1. ALEVE [Suspect]
     Active Substance: NAPROXEN SODIUM
     Indication: Pain
     Route: 065
  2. IBUPROFEN [Concomitant]
     Active Substance: IBUPROFEN

REACTIONS (1)
  - Renal disorder [Unknown]
